FAERS Safety Report 23945455 (Version 2)
Quarter: 2024Q2

REPORT INFORMATION
  Report Type: Spontaneous
  Country: CN (occurrence: CN)
  Receive Date: 20240606
  Receipt Date: 20240610
  Transmission Date: 20240715
  Serious: Yes (Other)
  Sender: FDA-Public Use
  Company Number: CN-SA-SAC20240604000101

PATIENT
  Age: 61 Year
  Sex: Male
  Weight: 50 kg

DRUGS (3)
  1. TAXOTERE [Suspect]
     Active Substance: DOCETAXEL
     Indication: Chemotherapy
     Dosage: 100 MG, Q3W
     Route: 041
     Dates: start: 20240402, end: 20240515
  2. CISPLATIN [Concomitant]
     Active Substance: CISPLATIN
     Indication: Chemotherapy
     Dosage: 30 MG, Q3W
     Route: 041
     Dates: start: 20240402, end: 20240515
  3. FLUOROURACIL [Concomitant]
     Active Substance: FLUOROURACIL
     Indication: Chemotherapy
     Dosage: 1 G, Q3W (PUMP INJECTION )
     Dates: start: 20240402, end: 20240519

REACTIONS (6)
  - Pus in stool [Recovering/Resolving]
  - Mucous stools [Recovering/Resolving]
  - Agranulocytosis [Recovering/Resolving]
  - Haematochezia [Recovering/Resolving]
  - Pyrexia [Recovering/Resolving]
  - Diarrhoea [Recovering/Resolving]

NARRATIVE: CASE EVENT DATE: 20240429
